FAERS Safety Report 5051358-4 (Version None)
Quarter: 2006Q3

REPORT INFORMATION
  Report Type: 
  Country: None (occurrence: None)
  Receive Date: 20060710
  Receipt Date: 20060626
  Transmission Date: 20061208
  Serious: Yes (Death)
  Sender: FDA-Public Use
  Company Number: 007819

PATIENT
  Age: 21 Year
  Sex: Female
  Weight: 52.2 kg

DRUGS (6)
  1. PLAN B [Suspect]
     Indication: CONTRACEPTION
     Dosage: SEE IMAGE
     Route: 048
     Dates: start: 20060228
  2. PLAN B [Suspect]
     Indication: CONTRACEPTION
     Dosage: SEE IMAGE
     Route: 048
     Dates: start: 20060329
  3. ORTHO TRI-CYCLEN [Concomitant]
  4. ANTIBIOTICS [Concomitant]
  5. TYLENOL COLD MEDICATION (CHLORPHENAMINE MALEATE, PSEUDOEPHEDRINE HYDRO [Concomitant]
  6. AMPHETAMINE [Concomitant]

REACTIONS (7)
  - ABDOMINAL DISTENSION [None]
  - ARRHYTHMIA [None]
  - DRUG USE FOR UNKNOWN INDICATION [None]
  - HEADACHE [None]
  - INFLUENZA [None]
  - MENORRHAGIA [None]
  - PELVIC INFLAMMATORY DISEASE [None]
